FAERS Safety Report 5557712-6 (Version None)
Quarter: 2007Q4

REPORT INFORMATION
  Report Type: 
  Country: None (occurrence: None)
  Receive Date: 20071214
  Receipt Date: 20071213
  Transmission Date: 20080405
  Serious: Yes (Other)
  Sender: FDA-Public Use
  Company Number: PHNU2007DE02435

PATIENT
  Sex: Male

DRUGS (3)
  1. IMMUNOSPORIN [Suspect]
     Indication: DERMATITIS ATOPIC
     Dosage: 200 MG/DAY
     Route: 065
  2. IMMUNOSPORIN [Suspect]
     Dosage: 20-25 MG/DAY
     Route: 065
  3. CORTISONE ACETATE TAB [Concomitant]

REACTIONS (3)
  - EOSINOPHIL COUNT INCREASED [None]
  - SPLENOMEGALY [None]
  - ULTRASOUND SCAN ABNORMAL [None]
